FAERS Safety Report 6003343-3 (Version None)
Quarter: 2008Q4

REPORT INFORMATION
  Report Type: 
  Country: None (occurrence: None)
  Receive Date: 20081216
  Receipt Date: 20081205
  Transmission Date: 20090506
  Serious: Yes (Hospitalization)
  Sender: FDA-Public Use
  Company Number: JP-AVENTIS-200813774JP

PATIENT
  Age: 72 Year

DRUGS (6)
  1. CLEXANE [Suspect]
     Route: 058
     Dates: start: 20081120, end: 20081128
  2. AMLODIN [Concomitant]
  3. CARDENALIN [Concomitant]
  4. DIOVANE [Concomitant]
  5. VOLTAREN [Concomitant]
     Dates: start: 20081120, end: 20081127
  6. MUCOSTA [Concomitant]
     Dates: start: 20081119, end: 20081121

REACTIONS (3)
  - C-REACTIVE PROTEIN INCREASED [None]
  - HEPATIC FUNCTION ABNORMAL [None]
  - PYREXIA [None]
